FAERS Safety Report 6396974-2 (Version None)
Quarter: 2009Q4

REPORT INFORMATION
  Report Type: 
  Country: None (occurrence: None)
  Receive Date: 20091012
  Receipt Date: 20090910
  Transmission Date: 20100525
  Serious: No
  Sender: FDA-Public Use
  Company Number: US-BAYER-200933142NA

PATIENT
  Age: 23 Year
  Sex: Female

DRUGS (1)
  1. MIRENA [Suspect]
     Indication: CONTRACEPTION
     Route: 015
     Dates: start: 20090101

REACTIONS (5)
  - ABDOMINAL PAIN [None]
  - ADVERSE EVENT [None]
  - AMENORRHOEA [None]
  - BACK PAIN [None]
  - VAGINAL HAEMORRHAGE [None]
